FAERS Safety Report 9596033 (Version 1)
Quarter: 2013Q4

REPORT INFORMATION
  Report Type: Spontaneous
  Country: US (occurrence: US)
  Receive Date: 20131004
  Receipt Date: 20131004
  Transmission Date: 20140711
  Serious: Yes (Hospitalization)
  Sender: FDA-Public Use
  Company Number: US-PFIZER INC-2013279774

PATIENT
  Age: 70 Year
  Sex: Female
  Weight: 88.44 kg

DRUGS (3)
  1. OXYCODONE HYDROCHLORIDE [Suspect]
     Indication: BACK PAIN
     Dosage: 15 MG, 3X/DAY
     Route: 048
  2. GABAPENTIN [Concomitant]
     Indication: NERVE INJURY
     Dosage: 300 MG, 3X/DAY
     Route: 048
  3. PREMARIN VAGINAL CREAM [Concomitant]
     Indication: INFECTION PROPHYLAXIS
     Dosage: 1G, 3X/WEEK
     Route: 067

REACTIONS (3)
  - Inappropriate schedule of drug administration [Unknown]
  - Palpitations [Recovered/Resolved]
  - Arrhythmia [Recovered/Resolved]
